FAERS Safety Report 18154030 (Version 1)
Quarter: 2020Q3

REPORT INFORMATION
  Report Type: Spontaneous
  Country: US (occurrence: US)
  Receive Date: 20200816
  Receipt Date: 20200816
  Transmission Date: 20201103
  Serious: No
  Sender: FDA-Public Use
  Company Number: US-ASTRAZENECA-2020SF01347

PATIENT
  Age: 23641 Day
  Sex: Male
  Weight: 129.3 kg

DRUGS (1)
  1. FASENRA [Suspect]
     Active Substance: BENRALIZUMAB
     Indication: ASTHMA
     Dosage: 30, EVERY EIGHT WEEKS
     Route: 058
     Dates: start: 202002

REACTIONS (5)
  - Dry mouth [Unknown]
  - Insurance issue [Unknown]
  - Dysphonia [Unknown]
  - Blood potassium decreased [Not Recovered/Not Resolved]
  - Product dose omission issue [Unknown]

NARRATIVE: CASE EVENT DATE: 20200802
